FAERS Safety Report 21262881 (Version 2)
Quarter: 2022Q4

REPORT INFORMATION
  Report Type: Spontaneous
  Country: JP (occurrence: JP)
  Receive Date: 20220828
  Receipt Date: 20221202
  Transmission Date: 20230113
  Serious: Yes (Death, Life-Threatening, Other)
  Sender: FDA-Public Use
  Company Number: JP-JNJFOC-A-CH2015-127941

PATIENT
  Age: 29 Year
  Sex: Female
  Weight: 51 kg

DRUGS (50)
  1. EPOPROSTENOL [Suspect]
     Active Substance: EPOPROSTENOL
     Indication: Pulmonary arterial hypertension
     Dosage: 3.28 NG/KG, PER MIN 0.25-0.75MG
     Route: 041
     Dates: start: 20151116
  2. EPOPROSTENOL [Suspect]
     Active Substance: EPOPROSTENOL
     Indication: Pulmonary arterial hypertension
     Dosage: 6 NG/KG, PER MIN
     Route: 042
  3. EPOPROSTENOL [Suspect]
     Active Substance: EPOPROSTENOL
     Dosage: 4.3 NG/KG, PER MIN
     Route: 042
  4. EPOPROSTENOL [Suspect]
     Active Substance: EPOPROSTENOL
     Dosage: 6.5 NG/KG, PER MIN
     Route: 042
  5. EPOPROSTENOL [Suspect]
     Active Substance: EPOPROSTENOL
     Dosage: 11.26 NG/KG, PER MIN
     Route: 042
  6. EPOPROSTENOL [Suspect]
     Active Substance: EPOPROSTENOL
     Dosage: 13.7 NG/KG, PER MIN 0.25-0.75MG
     Route: 042
     Dates: end: 20151204
  7. EPOPROSTENOL [Suspect]
     Active Substance: EPOPROSTENOL
     Dosage: 0.34 NG/KG, PER MIN
     Route: 041
     Dates: start: 201511
  8. EPOPROSTENOL [Suspect]
     Active Substance: EPOPROSTENOL
     Dosage: 13 NG/KG, PER MIN
     Route: 041
     Dates: start: 20151117
  9. OPSUMIT [Suspect]
     Active Substance: MACITENTAN
     Indication: Pulmonary arterial hypertension
     Dosage: 10 MG, QD
     Route: 048
     Dates: start: 20151116, end: 20151208
  10. OPSUMIT [Suspect]
     Active Substance: MACITENTAN
     Indication: Pulmonary arterial hypertension
  11. HEPARIN [Suspect]
     Active Substance: HEPARIN SODIUM
     Indication: Thrombosis prophylaxis
     Dosage: 10000 U, UNK
     Route: 042
     Dates: start: 20151117, end: 20151119
  12. HEPARIN [Suspect]
     Active Substance: HEPARIN SODIUM
     Indication: Shock
     Route: 065
     Dates: start: 20151121
  13. REVATIO [Concomitant]
     Active Substance: SILDENAFIL CITRATE
     Indication: Pulmonary arterial hypertension
     Route: 048
     Dates: start: 20151118, end: 20151208
  14. LANSOPRAZOLE [Concomitant]
     Active Substance: LANSOPRAZOLE
     Indication: Gastritis prophylaxis
     Route: 048
     Dates: start: 20151120, end: 20151126
  15. OXYGEN [Concomitant]
     Active Substance: OXYGEN
     Indication: Product used for unknown indication
  16. ADCIRCA [Concomitant]
     Active Substance: TADALAFIL
     Indication: Pulmonary arterial hypertension
     Route: 048
     Dates: start: 20151126, end: 20151208
  17. CABERGOLINE [Concomitant]
     Active Substance: CABERGOLINE
     Indication: Suppressed lactation
     Route: 048
     Dates: start: 20151117, end: 20151117
  18. CALONAL [Concomitant]
     Active Substance: ACETAMINOPHEN
     Indication: Afterbirth pain
     Route: 048
     Dates: start: 20151121, end: 20151122
  19. MIYA-BM [Concomitant]
     Active Substance: CLOSTRIDIUM BUTYRICUM SPORES STRAIN M-55
     Indication: Gastrointestinal disorder
     Route: 048
     Dates: start: 20151126, end: 20151208
  20. REBAMIPIDE [Concomitant]
     Active Substance: REBAMIPIDE
     Indication: Gastritis prophylaxis
     Route: 048
     Dates: start: 20151126, end: 20151208
  21. HYALURONATE SODIUM [Concomitant]
     Active Substance: HYALURONATE SODIUM
     Indication: Dry eye
     Route: 047
     Dates: start: 20151206, end: 20151208
  22. INOVAN [DOPAMINE HYDROCHLORIDE] [Concomitant]
     Indication: Promotion of peripheral circulation
     Route: 042
     Dates: start: 20151116, end: 20151117
  23. DOBUTAMINE HYDROCHLORIDE [Concomitant]
     Active Substance: DOBUTAMINE HYDROCHLORIDE
     Indication: Promotion of peripheral circulation
     Dosage: 1-3 TIMES
     Route: 042
     Dates: start: 20151116, end: 20151208
  24. MILRINONE [Concomitant]
     Active Substance: MILRINONE
     Indication: Promotion of peripheral circulation
     Route: 042
     Dates: start: 20151116, end: 20151118
  25. MILRINONE [Concomitant]
     Active Substance: MILRINONE
     Dosage: 1-2 TIMES
     Route: 042
     Dates: start: 20151202, end: 20151204
  26. PRECEDEX [Concomitant]
     Active Substance: DEXMEDETOMIDINE HYDROCHLORIDE
     Indication: Sedation
     Dosage: 2-3 TIMES
     Route: 042
     Dates: start: 20151116, end: 20151208
  27. FENTANYL CITRATE [Concomitant]
     Active Substance: FENTANYL CITRATE
     Indication: Sedation
     Route: 042
     Dates: start: 20151116, end: 20151208
  28. PROPOFOL [Concomitant]
     Active Substance: PROPOFOL
     Indication: Sedation
     Route: 042
     Dates: start: 20151116, end: 20151208
  29. CARPERITIDE [Concomitant]
     Active Substance: CARPERITIDE
     Indication: Cardiac failure
     Route: 042
     Dates: start: 20151116, end: 20151116
  30. TREPROSTINIL [Concomitant]
     Active Substance: TREPROSTINIL
     Indication: Pulmonary arterial hypertension
     Route: 042
     Dates: start: 20151204, end: 20151208
  31. HUMAN RED BLOOD CELL [Concomitant]
     Active Substance: HUMAN RED BLOOD CELL
     Indication: Transfusion
     Route: 042
     Dates: start: 20151116, end: 20151208
  32. HUMAN RED BLOOD CELL [Concomitant]
     Active Substance: HUMAN RED BLOOD CELL
     Indication: Shock
     Route: 065
     Dates: start: 20151121
  33. FRESH FROZEN PLASMA [Concomitant]
     Active Substance: HUMAN PLASMA
     Indication: Transfusion
     Dosage: 120-480ML P.R.N
     Route: 042
     Dates: start: 20151120, end: 20151208
  34. CEFAZOLIN SODIUM [Concomitant]
     Active Substance: CEFAZOLIN SODIUM
     Indication: Infection prophylaxis
     Route: 042
     Dates: start: 20151116, end: 20151130
  35. OMEPRAZOLE SODIUM [Concomitant]
     Active Substance: OMEPRAZOLE SODIUM
     Indication: Gastritis prophylaxis
     Route: 042
     Dates: start: 20151116, end: 20151208
  36. MIDAZOLAM HYDROCHLORIDE [Concomitant]
     Active Substance: MIDAZOLAM HYDROCHLORIDE
     Indication: Sedation
     Route: 042
     Dates: start: 20151126, end: 20151208
  37. ROCURONIUM BROMIDE [Concomitant]
     Active Substance: ROCURONIUM BROMIDE
     Indication: Sedation
     Route: 042
     Dates: start: 20151128, end: 20151203
  38. NOREPINEPHRINE [Concomitant]
     Active Substance: NOREPINEPHRINE
     Indication: Promotion of peripheral circulation
     Dosage: P.R.N0-1TIMES
     Route: 042
     Dates: start: 20151117, end: 20151208
  39. CALCIUM GLUCONATE [Concomitant]
     Active Substance: CALCIUM GLUCONATE
     Indication: Hyperkalaemia
     Route: 042
     Dates: start: 20151117, end: 20151121
  40. CARBAZOCHROME SODIUM SULFONATE [Concomitant]
     Active Substance: CARBAZOCHROME SODIUM SULFONATE
     Indication: Pulmonary haemorrhage
     Route: 042
     Dates: start: 20151124, end: 20151126
  41. LASIX [Concomitant]
     Active Substance: FUROSEMIDE
     Indication: Cardiac failure
     Route: 042
     Dates: start: 20151117, end: 20151204
  42. POTASSIUM CHLORIDE [Concomitant]
     Active Substance: POTASSIUM CHLORIDE
     Indication: Hypokalaemia
     Route: 042
     Dates: start: 20151120, end: 20151208
  43. HALOPERIDOL [Concomitant]
     Active Substance: HALOPERIDOL
     Indication: Sedation
     Route: 042
     Dates: start: 20151119, end: 20151121
  44. FRAGMIN [Concomitant]
     Active Substance: DALTEPARIN SODIUM
     Indication: Thrombosis prophylaxis
     Route: 042
     Dates: start: 20151126, end: 20151128
  45. AMPICILLIN SODIUM\SULBACTAM SODIUM [Concomitant]
     Active Substance: AMPICILLIN SODIUM\SULBACTAM SODIUM
     Indication: Infection prophylaxis
     Route: 042
     Dates: start: 20151130, end: 20151201
  46. ELEJECT [Concomitant]
     Indication: Nutritional supplementation
     Route: 042
     Dates: start: 20151201, end: 20151208
  47. ZINC SULFATE [Concomitant]
     Active Substance: ZINC SULFATE
     Indication: Product used for unknown indication
  48. VITAJECT [VITAMINS NOS] [Concomitant]
     Indication: Nutritional supplementation
     Route: 042
     Dates: start: 20151201, end: 20151208
  49. SAXIZON [Concomitant]
     Active Substance: HYDROCORTISONE SODIUM SUCCINATE
     Indication: Lung disorder
     Dosage: 100-200MG 1-2TIMES
     Route: 042
     Dates: start: 20151201, end: 20151208
  50. TRANSAMIN [Concomitant]
     Active Substance: TRANEXAMIC ACID
     Indication: Product used for unknown indication

REACTIONS (29)
  - Pulmonary hypertension [Fatal]
  - Multiple organ dysfunction syndrome [Not Recovered/Not Resolved]
  - Pulmonary alveolar haemorrhage [Not Recovered/Not Resolved]
  - Renal impairment [Not Recovered/Not Resolved]
  - Hepatic function abnormal [Not Recovered/Not Resolved]
  - Intra-abdominal haemorrhage [Recovered/Resolved]
  - Abdominal distension [Recovered/Resolved]
  - Activated partial thromboplastin time prolonged [Not Recovered/Not Resolved]
  - Respiratory failure [Not Recovered/Not Resolved]
  - Haematocrit decreased [Recovered/Resolved]
  - Haemoglobin decreased [Recovered/Resolved]
  - Platelet count decreased [Recovered/Resolved]
  - Red blood cell count decreased [Recovered/Resolved]
  - Haemorrhagic diathesis [Not Recovered/Not Resolved]
  - Hepatic failure [Not Recovered/Not Resolved]
  - Atelectasis [Not Recovered/Not Resolved]
  - Jaundice [Not Recovered/Not Resolved]
  - Alanine aminotransferase increased [Not Recovered/Not Resolved]
  - Aspartate aminotransferase increased [Not Recovered/Not Resolved]
  - Blood bilirubin increased [Not Recovered/Not Resolved]
  - Blood alkaline phosphatase increased [Not Recovered/Not Resolved]
  - Haemolytic anaemia [Recovering/Resolving]
  - Pulmonary alveolar haemorrhage [Not Recovered/Not Resolved]
  - Shock [Unknown]
  - Constipation [Recovering/Resolving]
  - Transfusion [Unknown]
  - Hypertension [Recovering/Resolving]
  - Bacillus infection [Not Recovered/Not Resolved]
  - Haemodialysis [Unknown]

NARRATIVE: CASE EVENT DATE: 20151117
